FAERS Safety Report 16369540 (Version 2)
Quarter: 2019Q2

REPORT INFORMATION
  Report Type: Report from Study
  Country: ES (occurrence: ES)
  Receive Date: 20190530
  Receipt Date: 20190610
  Transmission Date: 20190711
  Serious: Yes (Life-Threatening)
  Sender: FDA-Public Use
  Company Number: ES-ROCHE-2325800

PATIENT
  Age: 69 Year
  Sex: Male
  Weight: 56 kg

DRUGS (22)
  1. ENOXAPARIN [Concomitant]
     Active Substance: ENOXAPARIN
     Route: 042
     Dates: start: 20180620, end: 20180625
  2. DEXCHLORPHENIRAMINE [Concomitant]
     Active Substance: DEXCHLORPHENIRAMINE
     Indication: PRURITUS
     Route: 048
     Dates: start: 20180623, end: 20180712
  3. PARACETAMOL [Concomitant]
     Active Substance: ACETAMINOPHEN
     Route: 042
     Dates: start: 20180620, end: 20180623
  4. ENALAPRIL [Concomitant]
     Active Substance: ENALAPRIL
     Indication: POLYURIA
     Route: 042
     Dates: start: 20180620, end: 20180625
  5. INSULIN [Concomitant]
     Active Substance: INSULIN NOS
     Route: 058
     Dates: start: 20180821
  6. SULFAMETHOXAZOLE/TRIMETHOPRIM [Concomitant]
     Active Substance: SULFAMETHOXAZOLE\TRIMETHOPRIM
     Indication: INFECTION
     Route: 042
     Dates: start: 20180612, end: 20180626
  7. EZETIMIBA [Concomitant]
     Active Substance: EZETIMIBE
     Indication: HYPERCHOLESTEROLAEMIA
     Route: 048
  8. URSODEOXYCHOLIC ACID [Concomitant]
     Active Substance: URSODIOL
     Route: 042
     Dates: start: 20180622, end: 20180625
  9. CODEIN [Concomitant]
     Active Substance: CODEINE
     Indication: HAEMOPTYSIS
     Route: 048
     Dates: start: 20180805, end: 20180809
  10. MACROGOL 3350 [Concomitant]
     Active Substance: POLYETHYLENE GLYCOL 3350
     Indication: CONSTIPATION PROPHYLAXIS
     Dosage: 1 OTHER
     Route: 048
     Dates: start: 20180814
  11. ATEZOLIZUMAB. [Suspect]
     Active Substance: ATEZOLIZUMAB
     Indication: NON-SMALL CELL LUNG CANCER
     Dosage: ON 26/APR/2018, HE RECEIVED THE MOST RECENT DOSE (1200 MG) OF ATEZOLIZUMAB PRIOR TO AE (ADVERSE EVEN
     Route: 042
     Dates: start: 20171222
  12. PARACETAMOL [Concomitant]
     Active Substance: ACETAMINOPHEN
     Indication: THROMBOPHLEBITIS
     Route: 048
     Dates: end: 20180619
  13. METILPREDNISOLONE [Concomitant]
     Active Substance: METHYLPREDNISOLONE
     Indication: HEPATOTOXICITY
     Route: 065
     Dates: start: 20180613, end: 20180614
  14. OMEPRAZOL [OMEPRAZOLE] [Concomitant]
     Active Substance: OMEPRAZOLE
     Indication: GASTROINTESTINAL DISORDER PROPHYLAXIS
     Route: 048
     Dates: start: 20180622, end: 20180625
  15. RAMIPRIL. [Concomitant]
     Active Substance: RAMIPRIL
     Indication: HYPERTENSION
     Route: 048
     Dates: start: 2013
  16. ENOXAPARIN [Concomitant]
     Active Substance: ENOXAPARIN
     Indication: THROMBOPHLEBITIS
     Route: 058
     Dates: start: 201711, end: 20180619
  17. ATORVASTATIN [Concomitant]
     Active Substance: ATORVASTATIN
     Indication: HYPERCHOLESTEROLAEMIA
     Route: 048
  18. BEMIPARIN [Concomitant]
     Active Substance: BEMIPARIN
     Indication: PROPHYLAXIS
     Route: 048
     Dates: start: 20180206
  19. BETAMETASONA [BETAMETHASONE] [Concomitant]
     Indication: RASH
     Route: 061
  20. EBASTINE [Concomitant]
     Active Substance: EBASTINE
     Indication: PRURITUS
     Route: 048
  21. INSULIN [Concomitant]
     Active Substance: INSULIN NOS
     Dosage: 100 U
     Route: 042
     Dates: start: 20180623, end: 20180623
  22. URSODEOXYCHOLIC ACID [Concomitant]
     Active Substance: URSODIOL
     Dosage: 13 OTHER
     Route: 042
     Dates: start: 20180621

REACTIONS (1)
  - Gamma-glutamyltransferase increased [Not Recovered/Not Resolved]

NARRATIVE: CASE EVENT DATE: 20180523
